FAERS Safety Report 9782953 (Version 1)
Quarter: 2013Q4

REPORT INFORMATION
  Report Type: Spontaneous
  Country: US (occurrence: None)
  Receive Date: 20131224
  Receipt Date: 20131224
  Transmission Date: 20140711
  Serious: Yes (Disabling)
  Sender: FDA-Public Use
  Company Number: None

PATIENT
  Age: 73 Year
  Sex: Male
  Weight: 78 kg

DRUGS (1)
  1. TRANEXAMIC ACID [Suspect]
     Indication: POST PROCEDURAL HAEMORRHAGE
     Route: 042
     Dates: start: 20131207, end: 20131207

REACTIONS (4)
  - Unresponsive to stimuli [None]
  - Embolic cerebral infarction [None]
  - Cerebral atrophy [None]
  - White matter lesion [None]
